FAERS Safety Report 20297641 (Version 1)
Quarter: 2022Q1

REPORT INFORMATION
  Report Type: Spontaneous
  Country: US (occurrence: None)
  Receive Date: 20220105
  Receipt Date: 20220105
  Transmission Date: 20220423
  Serious: Yes (Death)
  Sender: FDA-Public Use
  Company Number: US-ROCHE-2722429

PATIENT
  Age: 81 Year
  Sex: Female
  Weight: 91.8 kg

DRUGS (2)
  1. ACTIVASE [Suspect]
     Active Substance: ALTEPLASE
     Indication: Ischaemic stroke
     Dosage: X1 DOSE (1 TIME DOSE)?SUBSEQUENTLY RECEIVED ALTEPLASE IV AND ON 14/SEP/2020?LYOPHILIZED POWDER
     Route: 042
     Dates: start: 20200913, end: 20200913
  2. IOHEXOL [Concomitant]
     Active Substance: IOHEXOL
     Route: 042
     Dates: start: 20200913, end: 20200913

REACTIONS (2)
  - Haemorrhage intracranial [Fatal]
  - Poor quality product administered [Unknown]

NARRATIVE: CASE EVENT DATE: 20200913
